FAERS Safety Report 12561976 (Version 1)
Quarter: 2016Q3

REPORT INFORMATION
  Report Type: Spontaneous
  Country: FR (occurrence: FR)
  Receive Date: 20160715
  Receipt Date: 20160715
  Transmission Date: 20161109
  Serious: Yes (Hospitalization)
  Sender: FDA-Public Use
  Company Number: FR-009507513-1606FRA002873

PATIENT
  Age: 35 Year
  Sex: Female

DRUGS (7)
  1. PROGESTERONE. [Suspect]
     Active Substance: PROGESTERONE
     Indication: IN VITRO FERTILISATION
     Dosage: 200 MG, TID
     Route: 067
     Dates: start: 20151211, end: 20160111
  2. DECAPEPTYL (ACETATE) [Suspect]
     Active Substance: TRIPTORELIN ACETATE
     Indication: IN VITRO FERTILISATION
     Dosage: (0.2 MG, IN 1 SINGLE DOSE) (0.2 MG, 1 IN 1 D)
     Route: 058
     Dates: start: 20151209, end: 20151209
  3. GONAL-F [Suspect]
     Active Substance: FOLLITROPIN
     Indication: IN VITRO FERTILISATION
     Dosage: 125 IU, ONCE PER DAY) (125 IU, 1 IN 1 D)
     Route: 058
     Dates: start: 20151125, end: 20151208
  4. ORGALUTRAN [Suspect]
     Active Substance: GANIRELIX ACETATE
     Indication: IN VITRO FERTILISATION
     Dosage: DAILY DOSE: 0.25 MG/0.5 ML
     Route: 058
     Dates: start: 20151130, end: 20151209
  5. DUPHASTON [Suspect]
     Active Substance: DYDROGESTERONE
     Indication: IN VITRO FERTILISATION
     Dosage: UNK
     Route: 048
     Dates: start: 20151107, end: 20151116
  6. PROVAMES [Suspect]
     Active Substance: ESTRADIOL
     Indication: IN VITRO FERTILISATION
     Dosage: (1 DOSE, 2 TIMES PER DAY) (1 DOSAGE FORM, 2 IN 1 D)
     Route: 048
     Dates: start: 20151112, end: 20151125
  7. PROVAMES [Suspect]
     Active Substance: ESTRADIOL
     Dosage: (1 DOSE, 2 TIMES PER DAY) (1 DOSAGE FORM, 2 IN 1 D)
     Route: 048
     Dates: start: 20151211, end: 20160111

REACTIONS (1)
  - Ovarian cyst ruptured [Recovered/Resolved]

NARRATIVE: CASE EVENT DATE: 20160124
